FAERS Safety Report 6011908-8 (Version None)
Quarter: 2008Q4

REPORT INFORMATION
  Report Type: 
  Country: None (occurrence: None)
  Receive Date: 20081218
  Receipt Date: 20081002
  Transmission Date: 20090506
  Serious: No
  Sender: FDA-Public Use
  Company Number: US-ASTRAZENECA-2008UW21322

PATIENT
  Sex: Female

DRUGS (4)
  1. CRESTOR [Suspect]
     Route: 048
     Dates: start: 20080101
  2. ZOLOFT [Concomitant]
  3. SUDAFED 12 HOUR [Concomitant]
  4. VITAMINS [Concomitant]

REACTIONS (1)
  - SLEEP DISORDER [None]
